FAERS Safety Report 25761476 (Version 1)
Quarter: 2025Q3

REPORT INFORMATION
  Report Type: Spontaneous
  Country: US (occurrence: US)
  Receive Date: 20250904
  Receipt Date: 20250904
  Transmission Date: 20251020
  Serious: No
  Sender: MEDEXUS PHARMA
  Company Number: US-MEDEXUS PHARMA, INC.-2025MED00165

PATIENT
  Sex: Female

DRUGS (1)
  1. RASUVO [Suspect]
     Active Substance: METHOTREXATE SODIUM
     Indication: Rheumatoid arthritis

REACTIONS (3)
  - Pain [Not Recovered/Not Resolved]
  - Dysgraphia [Not Recovered/Not Resolved]
  - Arthralgia [Not Recovered/Not Resolved]
